FAERS Safety Report 15706512 (Version 2)
Quarter: 2019Q2

REPORT INFORMATION
  Report Type: Spontaneous
  Country: CA (occurrence: CA)
  Receive Date: 20181210
  Receipt Date: 20190411
  Transmission Date: 20190711
  Serious: Yes (Other)
  Sender: FDA-Public Use
  Company Number: CA-SA-2018SA331431

PATIENT
  Age: 46 Year
  Sex: Male

DRUGS (16)
  1. MOXIFLOXACIN HYDROCHLORIDE. [Interacting]
     Active Substance: MOXIFLOXACIN HYDROCHLORIDE
     Indication: PULMONARY TUBERCULOSIS
     Dosage: 600 MG
  2. TENOFOVIR [Concomitant]
     Active Substance: TENOFOVIR
     Indication: HIV INFECTION
     Dosage: 300 MG
  3. ETHAMBUTOL [Interacting]
     Active Substance: ETHAMBUTOL HYDROCHLORIDE
     Indication: PULMONARY TUBERCULOSIS
     Dosage: 1600 MG
  4. ETHAMBUTOL [Interacting]
     Active Substance: ETHAMBUTOL HYDROCHLORIDE
     Dosage: 1000 MG
  5. ISONIAZID. [Interacting]
     Active Substance: ISONIAZID
     Indication: PULMONARY TUBERCULOSIS
     Dosage: 300 MG
  6. MOXIFLOXACIN HYDROCHLORIDE. [Interacting]
     Active Substance: MOXIFLOXACIN HYDROCHLORIDE
     Dosage: 9.2 MG/KG, 800MG
  7. EMTRICITABINE [Concomitant]
     Active Substance: EMTRICITABINE
     Indication: HIV INFECTION
     Dosage: 200 MG
  8. EFAVIRENZ. [Interacting]
     Active Substance: EFAVIRENZ
     Indication: HIV INFECTION
     Dosage: 800 MG
  9. EFAVIRENZ. [Interacting]
     Active Substance: EFAVIRENZ
     Dosage: 600 MG
  10. ETHAMBUTOL [Interacting]
     Active Substance: ETHAMBUTOL HYDROCHLORIDE
     Dosage: 1200 MG
  11. ISONIAZID. [Interacting]
     Active Substance: ISONIAZID
     Dosage: 450 MG
  12. MOXIFLOXACIN HYDROCHLORIDE. [Interacting]
     Active Substance: MOXIFLOXACIN HYDROCHLORIDE
     Dosage: 8.2 MG/KG
  13. RIFAMPICIN [Suspect]
     Active Substance: RIFAMPIN
     Indication: PULMONARY TUBERCULOSIS
     Dosage: 750 MG
  14. PYRAZINAMIDE. [Interacting]
     Active Substance: PYRAZINAMIDE
     Indication: PULMONARY TUBERCULOSIS
     Dosage: 1800 MG
  15. RIFAMPICIN [Interacting]
     Active Substance: RIFAMPIN
     Dosage: 600 MG
  16. ETHAMBUTOL [Interacting]
     Active Substance: ETHAMBUTOL HYDROCHLORIDE
     Dosage: 1400 MG

REACTIONS (2)
  - Drug interaction [Unknown]
  - Transaminases increased [Unknown]
